FAERS Safety Report 22283440 (Version 2)
Quarter: 2023Q2

REPORT INFORMATION
  Report Type: Report from Study
  Country: AU (occurrence: AU)
  Receive Date: 20230504
  Receipt Date: 20230504
  Transmission Date: 20230721
  Serious: Yes (Hospitalization)
  Sender: FDA-Public Use
  Company Number: AU-REATA-2022AURTA408000007

PATIENT

DRUGS (7)
  1. OMAVELOXOLONE [Suspect]
     Active Substance: OMAVELOXOLONE
     Indication: Friedreich^s ataxia
     Dosage: UNK, QD
     Route: 048
     Dates: start: 20190228, end: 20221203
  2. IBUPROFEN [Concomitant]
     Active Substance: IBUPROFEN
     Indication: Back pain
     Dosage: 2 TABLET, ONCE
     Route: 048
     Dates: start: 20190302, end: 20190302
  3. IBUPROFEN [Concomitant]
     Active Substance: IBUPROFEN
     Indication: Illness
     Dosage: 2 TABLET, ONCE
     Route: 048
     Dates: start: 20190309, end: 20190309
  4. IBUPROFEN [Concomitant]
     Active Substance: IBUPROFEN
     Dosage: 2 TABLET, ONCE
     Route: 048
     Dates: start: 20190320, end: 20190320
  5. IBUPROFEN [Concomitant]
     Active Substance: IBUPROFEN
     Dosage: 2 TABLET, PRN
     Route: 048
     Dates: start: 20190401
  6. IBUPROFEN [Concomitant]
     Active Substance: IBUPROFEN
     Dosage: 2 TABLET, BID
     Route: 048
     Dates: start: 20220430, end: 20220506
  7. VITAMIN D NOS [Concomitant]
     Active Substance: VITAMIN D NOS
     Indication: Vitamin D deficiency
     Dosage: 1000 INTERNATIONAL UNIT, QD
     Route: 048
     Dates: start: 20201116

REACTIONS (1)
  - Pulmonary embolism [None]

NARRATIVE: CASE EVENT DATE: 20221203
